FAERS Safety Report 12239855 (Version 1)
Quarter: 2016Q2

REPORT INFORMATION
  Report Type: Spontaneous
  Country: US (occurrence: US)
  Receive Date: 20160405
  Receipt Date: 20160405
  Transmission Date: 20160815
  Serious: Yes (Other)
  Sender: FDA-Public Use
  Company Number: US-GLAXOSMITHKLINE-US2016GSK046111

PATIENT
  Sex: Female

DRUGS (1)
  1. WELLBUTRIN [Suspect]
     Active Substance: BUPROPION HYDROCHLORIDE
     Indication: PRODUCT USED FOR UNKNOWN INDICATION
     Dosage: UNK

REACTIONS (6)
  - Personality change [Unknown]
  - Suicidal ideation [Unknown]
  - Insomnia [Unknown]
  - Paranoia [Unknown]
  - Abnormal behaviour [Unknown]
  - Feelings of worthlessness [Unknown]
